FAERS Safety Report 23576867 (Version 2)
Quarter: 2024Q3

REPORT INFORMATION
  Report Type: Spontaneous
  Country: FR (occurrence: FR)
  Receive Date: 20240228
  Receipt Date: 20240906
  Transmission Date: 20241016
  Serious: Yes (Hospitalization)
  Sender: TEVA
  Company Number: None

PATIENT
  Age: 74 Year
  Sex: Male
  Weight: 74.1 kg

DRUGS (9)
  1. CANDESARTAN CILEXETIL [Suspect]
     Active Substance: CANDESARTAN CILEXETIL
     Indication: Hypertension
     Route: 048
     Dates: end: 20211215
  2. BISOPROLOL FUMARATE [Concomitant]
     Active Substance: BISOPROLOL FUMARATE
     Indication: Hypertension
     Route: 048
  3. KARDEGIC [Concomitant]
     Active Substance: ASPIRIN DL-LYSINE
     Indication: Ischaemic heart disease prophylaxis
     Route: 048
  4. VICTOZA [Concomitant]
     Active Substance: LIRAGLUTIDE
     Indication: Type 2 diabetes mellitus
     Route: 058
  5. INSULINE DETEMIR [Concomitant]
     Indication: Type 2 diabetes mellitus
     Dosage: ACCORDING TO BLOOD SUGAR, ((LEVURE/SACCHAROMYCES CEREVISIAE))
     Route: 058
  6. METFORMIN [Suspect]
     Active Substance: METFORMIN HYDROCHLORIDE
     Indication: Type 2 diabetes mellitus
     Route: 048
     Dates: start: 202002, end: 20211215
  7. GLICLAZIDE [Suspect]
     Active Substance: GLICLAZIDE
     Indication: Type 2 diabetes mellitus
     Route: 048
  8. EZETIMIBE [Concomitant]
     Active Substance: EZETIMIBE
     Indication: Dyslipidaemia
     Route: 048
  9. ROSUVASTATIN [Concomitant]
     Active Substance: ROSUVASTATIN\ROSUVASTATIN CALCIUM
     Indication: Dyslipidaemia
     Route: 048

REACTIONS (3)
  - Potentiating drug interaction [Recovered/Resolved]
  - Lactic acidosis [Recovered/Resolved]
  - Drug level above therapeutic [Recovering/Resolving]

NARRATIVE: CASE EVENT DATE: 20211215
